FAERS Safety Report 8056609-X (Version None)
Quarter: 2012Q1

REPORT INFORMATION
  Report Type: 
  Country: None (occurrence: None)
  Receive Date: 20120119
  Receipt Date: 20120109
  Transmission Date: 20120608
  Serious: Yes (Other)
  Sender: FDA-Public Use
  Company Number: CHPA2012US000823

PATIENT
  Age: 66 Year
  Sex: Female

DRUGS (1)
  1. EXCEDRIN TENSION HEADACHE CAPLETS [Suspect]
     Indication: BACK PAIN
     Dosage: UNK, EVERYDAY
     Route: 048
     Dates: end: 20120109

REACTIONS (2)
  - INCORRECT DRUG ADMINISTRATION DURATION [None]
  - GASTROINTESTINAL ULCER HAEMORRHAGE [None]
